FAERS Safety Report 11155118 (Version 2)
Quarter: 2015Q2

REPORT INFORMATION
  Report Type: Report from Study
  Country: DE (occurrence: DE)
  Receive Date: 20150602
  Receipt Date: 20150630
  Transmission Date: 20150821
  Serious: Yes (Hospitalization)
  Sender: FDA-Public Use
  Company Number: DE-BRISTOL-MYERS SQUIBB COMPANY-BMS-2015-035492

PATIENT
  Age: 74 Year
  Sex: Male
  Weight: 60 kg

DRUGS (9)
  1. CETUXIMAB [Suspect]
     Active Substance: CETUXIMAB
     Dosage: 187.5 UNK, UNK
     Route: 042
     Dates: start: 20140403, end: 20141002
  2. OXALIPLATIN. [Concomitant]
     Active Substance: OXALIPLATIN
     Indication: COLORECTAL CANCER METASTATIC
     Dosage: 50 MG/M2, QWK
     Route: 042
     Dates: start: 20140505
  3. OXALIPLATIN. [Concomitant]
     Active Substance: OXALIPLATIN
     Dosage: 50 MG/M2, ONCE
     Route: 042
     Dates: start: 20141120, end: 20141120
  4. CETUXIMAB [Suspect]
     Active Substance: CETUXIMAB
     Indication: COLORECTAL CANCER METASTATIC
     Dosage: 400 MG/M2, UNK
     Route: 042
     Dates: start: 20140304
  5. CETUXIMAB [Suspect]
     Active Substance: CETUXIMAB
     Dosage: 250 UNK, UNK
     Route: 042
     Dates: start: 20140313, end: 20140413
  6. CETUXIMAB [Suspect]
     Active Substance: CETUXIMAB
     Dosage: 187.5 UNK, ONCE
     Route: 042
     Dates: start: 20141127
  7. 5 FLUOROURACIL                     /00098801/ [Concomitant]
     Active Substance: FLUOROURACIL
     Indication: COLORECTAL CANCER METASTATIC
     Dosage: 2000 MG/M2, QWK
     Route: 042
     Dates: start: 20140505
  8. CETUXIMAB [Suspect]
     Active Substance: CETUXIMAB
     Dosage: 400 MG/M2, ONCE
     Route: 042
     Dates: start: 20141120, end: 20141120
  9. FOLINIC ACID [Concomitant]
     Active Substance: LEUCOVORIN
     Indication: COLORECTAL CANCER METASTATIC
     Dosage: 50 MG/M2, QWK
     Route: 042
     Dates: start: 20140505

REACTIONS (1)
  - Heart valve operation [Recovered/Resolved]

NARRATIVE: CASE EVENT DATE: 20150120
